FAERS Safety Report 9123113 (Version 2)
Quarter: 2013Q1

REPORT INFORMATION
  Report Type: Spontaneous
  Country: US (occurrence: None)
  Receive Date: 20130131
  Receipt Date: 20130312
  Transmission Date: 20140127
  Serious: Yes (Hospitalization)
  Sender: FDA-Public Use
  Company Number: 1576446

PATIENT
  Sex: Male

DRUGS (1)
  1. MARCAINE [Suspect]
     Indication: NERVE BLOCK
     Dosage: 5  CC ON EACH LEG,

REACTIONS (1)
  - Cellulitis [None]
